FAERS Safety Report 6257562-1 (Version None)
Quarter: 2009Q3

REPORT INFORMATION
  Report Type: 
  Country: None (occurrence: None)
  Receive Date: 20090706
  Receipt Date: 20090701
  Transmission Date: 20100115
  Serious: Yes (Life-Threatening, Hospitalization, Other)
  Sender: FDA-Public Use
  Company Number: PHHY2008JP24148

PATIENT
  Sex: Male
  Weight: 67 kg

DRUGS (6)
  1. ZOMETA [Suspect]
     Indication: MULTIPLE MYELOMA
     Dosage: 4 MG
     Route: 042
     Dates: start: 20080910, end: 20080910
  2. ZOMETA [Suspect]
     Indication: BONE LESION
  3. ZYLORIC [Suspect]
     Indication: HYPERURICAEMIA
     Dosage: 100 MG DAILY
     Route: 048
     Dates: start: 20080908
  4. ALLELOCK [Suspect]
     Indication: RHINITIS ALLERGIC
     Dosage: 2 DF DAILY
     Route: 048
     Dates: start: 20080910
  5. ELCITONIN [Suspect]
     Indication: OSTEOPOROSIS
     Dosage: 20 IU, UNK
     Route: 030
     Dates: start: 20080911, end: 20080911
  6. MAGLAX [Concomitant]
     Dosage: UNK
     Route: 048
     Dates: start: 20080910

REACTIONS (5)
  - BLOOD CREATININE INCREASED [None]
  - PULMONARY OEDEMA [None]
  - PYREXIA [None]
  - RENAL IMPAIRMENT [None]
  - STAPHYLOCOCCAL SEPSIS [None]
